FAERS Safety Report 4634610-3 (Version None)
Quarter: 2005Q2

REPORT INFORMATION
  Report Type: 
  Country: None (occurrence: None)
  Receive Date: 20050413
  Receipt Date: 20050329
  Transmission Date: 20051028
  Serious: Yes (Life-Threatening, Hospitalization)
  Sender: FDA-Public Use
  Company Number: 2004225092JP

PATIENT
  Age: 13 Year
  Sex: Male
  Weight: 51.0297 kg

DRUGS (8)
  1. GENOTROPIN [Suspect]
     Indication: BODY HEIGHT BELOW NORMAL
     Dosage: SEE IMAGE
     Route: 058
     Dates: start: 20040401, end: 20040709
  2. GENOTROPIN [Suspect]
     Indication: BODY HEIGHT BELOW NORMAL
     Dosage: SEE IMAGE
     Route: 058
     Dates: start: 20011004
  3. INSULIN [Concomitant]
  4. SULPIRIDE (SULPIRIDE) [Concomitant]
  5. LORAZEPAM [Concomitant]
  6. POTASSIUM CHLORIDE [Concomitant]
  7. ALFACALCIDOL (ALFACALCIDOL) [Concomitant]
  8. CALCIUM CARBONATE (CALCIUM CARBONATE) [Concomitant]

REACTIONS (16)
  - ABDOMINAL PAIN [None]
  - ANOREXIA [None]
  - BLOOD POTASSIUM DECREASED [None]
  - BLOOD SODIUM DECREASED [None]
  - CENTRAL PONTINE MYELINOLYSIS [None]
  - CLONIC CONVULSION [None]
  - CONVULSION [None]
  - DEPRESSION [None]
  - DIABETES MELLITUS NON-INSULIN-DEPENDENT [None]
  - DIABETIC HYPEROSMOLAR COMA [None]
  - DIARRHOEA [None]
  - NAUSEA [None]
  - PSYCHOSOMATIC DISEASE [None]
  - SOMNOLENCE [None]
  - TRUANCY [None]
  - WEIGHT DECREASED [None]
